FAERS Safety Report 21006259 (Version 1)
Quarter: 2022Q2

REPORT INFORMATION
  Report Type: Spontaneous
  Country: US (occurrence: US)
  Receive Date: 20220624
  Receipt Date: 20220624
  Transmission Date: 20220721
  Serious: Yes (Hospitalization, Other)
  Sender: FDA-Public Use
  Company Number: US-ABBVIE-22K-163-4432863-00

PATIENT
  Sex: Male
  Weight: 94.886 kg

DRUGS (6)
  1. HUMIRA [Suspect]
     Active Substance: ADALIMUMAB
     Indication: Crohn^s disease
     Route: 058
     Dates: start: 2011, end: 2013
  2. HUMIRA [Suspect]
     Active Substance: ADALIMUMAB
     Route: 058
     Dates: start: 20220613
  3. MODERNA COVID-19 VACCINE [Concomitant]
     Active Substance: ELASOMERAN
     Indication: COVID-19 immunisation
     Dosage: FIRST DOSE
     Route: 030
     Dates: start: 202103, end: 202103
  4. MODERNA COVID-19 VACCINE [Concomitant]
     Active Substance: ELASOMERAN
     Dosage: SECOND DOSE
     Route: 030
     Dates: start: 2021, end: 2021
  5. MODERNA COVID-19 VACCINE [Concomitant]
     Active Substance: ELASOMERAN
     Dosage: THIRD DOSE
     Route: 030
     Dates: start: 202111, end: 202111
  6. XELJANZ [Concomitant]
     Active Substance: TOFACITINIB CITRATE
     Indication: Crohn^s disease

REACTIONS (6)
  - Gastrointestinal neoplasm [Unknown]
  - Crohn^s disease [Not Recovered/Not Resolved]
  - Gastritis [Not Recovered/Not Resolved]
  - Wrong technique in product usage process [Unknown]
  - Therapeutic product effect decreased [Unknown]
  - Crohn^s disease [Unknown]

NARRATIVE: CASE EVENT DATE: 20130101
